FAERS Safety Report 5947306-2 (Version None)
Quarter: 2008Q4

REPORT INFORMATION
  Report Type: 
  Country: None (occurrence: None)
  Receive Date: 20081110
  Receipt Date: 20081030
  Transmission Date: 20090506
  Serious: Yes (Hospitalization)
  Sender: FDA-Public Use
  Company Number: ES-PFIZER INC-2008091430

PATIENT
  Age: 68 Year
  Sex: Female

DRUGS (6)
  1. ALDACTONE [Suspect]
     Indication: HYPERTENSION
     Route: 048
  2. OXCARBAZEPINE [Interacting]
     Dosage: DAILY DOSE:600MG-TEXT:EVERY DAY
     Route: 048
     Dates: start: 20080901, end: 20080920
  3. PARAPRES [Interacting]
     Indication: HYPERTENSION
     Route: 048
  4. SEGURIL [Interacting]
     Indication: HYPERTENSION
     Route: 048
  5. BOI K [Concomitant]
  6. ACENOCUMAROL [Concomitant]

REACTIONS (2)
  - DRUG INTERACTION [None]
  - HYPONATRAEMIA [None]
